FAERS Safety Report 8279227-7 (Version None)
Quarter: 2012Q2

REPORT INFORMATION
  Report Type: 
  Country: None (occurrence: None)
  Receive Date: 20120412
  Receipt Date: 20110317
  Transmission Date: 20120825
  Serious: No
  Sender: FDA-Public Use
  Company Number: US-ASTRAZENECA-2011SE15203

PATIENT
  Age: 73 Year
  Sex: Female

DRUGS (6)
  1. FOSAMAX [Suspect]
  2. ACTONEL [Suspect]
  3. NEXIUM [Suspect]
     Indication: DYSPEPSIA
     Dosage: EVERY 24 HOURS
     Route: 048
  4. THYROID MEDICATION [Concomitant]
  5. VITAMIN TAB [Concomitant]
  6. CALCIUM CARBONATE [Concomitant]

REACTIONS (2)
  - DYSPEPSIA [None]
  - DRUG DOSE OMISSION [None]
